FAERS Safety Report 7803540-8 (Version None)
Quarter: 2011Q4

REPORT INFORMATION
  Report Type: 
  Country: None (occurrence: None)
  Receive Date: 20111009
  Receipt Date: 20110405
  Transmission Date: 20120403
  Serious: Yes (Other)
  Sender: FDA-Public Use
  Company Number: PHHY2011US27794

PATIENT
  Sex: Male

DRUGS (2)
  1. FANAPT [Suspect]
     Dosage: 8 MG, BID
     Route: 048
  2. GEODON [Suspect]
     Dosage: 80 MG, BID
     Route: 048
     Dates: start: 20110301

REACTIONS (1)
  - RETROGRADE EJACULATION [None]
